FAERS Safety Report 24296686 (Version 1)
Quarter: 2024Q3

REPORT INFORMATION
  Report Type: Spontaneous
  Country: US (occurrence: US)
  Receive Date: 20240909
  Receipt Date: 20240909
  Transmission Date: 20241017
  Serious: Yes (Hospitalization)
  Sender: SANDOZ
  Company Number: US-002147023-NVSC2021US071196

PATIENT
  Age: 54 Year
  Sex: Female
  Weight: 90.9 kg

DRUGS (21)
  1. CYCLOPHOSPHAMIDE [Suspect]
     Active Substance: CYCLOPHOSPHAMIDE
     Indication: Lymphodepletion
     Dosage: 1209 MG, QD, EVERYDAY
     Route: 065
     Dates: start: 20200401, end: 20200403
  2. CISPLATIN [Suspect]
     Active Substance: CISPLATIN
     Indication: B-cell lymphoma refractory
     Dosage: 189 MG, CONT, (CONTINOUS INFUSION 24 H)
     Route: 042
     Dates: start: 20200314
  3. CYTARABINE [Suspect]
     Active Substance: CYTARABINE
     Indication: B-cell lymphoma refractory
     Dosage: 7560 MG, BID
     Route: 042
     Dates: start: 20200315
  4. DEXAMETHASONE [Suspect]
     Active Substance: DEXAMETHASONE
     Indication: B-cell lymphoma refractory
     Dosage: 60 MG, QD
     Route: 048
     Dates: start: 20200314
  5. FLUDARABINE [Suspect]
     Active Substance: FLUDARABINE PHOSPHATE
     Indication: Lymphodepletion
     Dosage: 120 MG, QD, EVERYDAY
     Route: 065
     Dates: start: 20200401, end: 20200403
  6. ACETAMINOPHEN [Concomitant]
     Active Substance: ACETAMINOPHEN
     Indication: Headache
     Dosage: UNK
     Route: 065
     Dates: start: 20200316, end: 20200316
  7. ACETAMINOPHEN [Concomitant]
     Active Substance: ACETAMINOPHEN
     Indication: Premedication
     Dosage: UNK
     Route: 065
     Dates: start: 20200406, end: 20200406
  8. ALLOPURINOL [Concomitant]
     Active Substance: ALLOPURINOL
     Indication: Prophylaxis
     Dosage: UNK
     Route: 065
     Dates: start: 20200406, end: 20200417
  9. ATENOLOL [Concomitant]
     Active Substance: ATENOLOL
     Indication: Blood pressure management
     Dosage: UNK
     Route: 065
     Dates: start: 2020
  10. CIPROFLOXACIN [Concomitant]
     Active Substance: CIPROFLOXACIN
     Indication: Infection prophylaxis
     Dosage: UNK
     Route: 065
     Dates: start: 20200406, end: 20200409
  11. DIPHENHYDRAMINE [Concomitant]
     Active Substance: DIPHENHYDRAMINE
     Indication: Premedication
     Dosage: UNK
     Route: 065
     Dates: start: 20200406, end: 20200406
  12. FONDAPARINUX [Concomitant]
     Active Substance: FONDAPARINUX
     Indication: Thrombosis prophylaxis
     Dosage: UNK
     Route: 065
     Dates: start: 20200406, end: 20200419
  13. LEVETIRACETAM [Concomitant]
     Active Substance: LEVETIRACETAM
     Indication: Seizure prophylaxis
     Dosage: UNK
     Route: 065
     Dates: start: 20200406, end: 20200423
  14. MAGNESIUM SULFATE [Concomitant]
     Active Substance: MAGNESIUM SULFATE\MAGNESIUM SULFATE HEPTAHYDRATE
     Indication: Hypomagnesaemia
     Dosage: UNK
     Route: 065
     Dates: start: 20200406, end: 20200406
  15. ONDANSETRON [Concomitant]
     Active Substance: ONDANSETRON
     Indication: Prophylaxis of nausea and vomiting
     Dosage: UNK
     Route: 065
     Dates: start: 20200318, end: 20200318
  16. ONDANSETRON [Concomitant]
     Active Substance: ONDANSETRON
     Dosage: UNK
     Route: 065
     Dates: start: 20200406, end: 20200421
  17. PEGFILGRASTIM [Concomitant]
     Active Substance: PEGFILGRASTIM
     Indication: White blood cell count
     Dosage: UNK
     Route: 065
     Dates: start: 20200318, end: 20200318
  18. POTASSIUM CHLORIDE [Concomitant]
     Active Substance: POTASSIUM CHLORIDE
     Indication: Hypokalaemia
     Dosage: UNK
     Route: 065
     Dates: start: 20200406, end: 20200406
  19. SODIUM CHLORIDE [Concomitant]
     Active Substance: SODIUM CHLORIDE
     Indication: Fluid replacement
     Dosage: 0.9 %
     Route: 065
     Dates: start: 20200318, end: 20200318
  20. SODIUM CHLORIDE [Concomitant]
     Active Substance: SODIUM CHLORIDE
     Dosage: 0.9 %
     Route: 065
     Dates: start: 20200325, end: 20200325
  21. SODIUM CHLORIDE [Concomitant]
     Active Substance: SODIUM CHLORIDE
     Dosage: 0.9 %
     Route: 065
     Dates: start: 20200406, end: 20200409

REACTIONS (1)
  - Pancytopenia [Recovered/Resolved]

NARRATIVE: CASE EVENT DATE: 20200406
